FAERS Safety Report 11370405 (Version 1)
Quarter: 2015Q3

REPORT INFORMATION
  Report Type: Spontaneous
  Country: CH (occurrence: CH)
  Receive Date: 20150812
  Receipt Date: 20150812
  Transmission Date: 20151125
  Serious: Yes (Other)
  Sender: FDA-Public Use
  Company Number: CH-JNJFOC-20150805599

PATIENT
  Age: 55 Year
  Sex: Male

DRUGS (5)
  1. TORASEM [Concomitant]
     Active Substance: TORSEMIDE
     Route: 065
  2. XARELTO [Suspect]
     Active Substance: RIVAROXABAN
     Indication: EMBOLISM VENOUS
     Route: 065
  3. PANTOPRAZOLE [Concomitant]
     Active Substance: PANTOPRAZOLE SODIUM
     Route: 065
  4. XARELTO [Suspect]
     Active Substance: RIVAROXABAN
     Indication: DEEP VEIN THROMBOSIS
     Route: 065
  5. INDOCID [Concomitant]
     Active Substance: INDOMETHACIN
     Route: 065

REACTIONS (4)
  - Haemorrhage [Unknown]
  - Haemorrhoids [Unknown]
  - Product use issue [Unknown]
  - Infection [Unknown]
